FAERS Safety Report 7805547-3 (Version None)
Quarter: 2011Q4

REPORT INFORMATION
  Report Type: 
  Country: None (occurrence: None)
  Receive Date: 20111010
  Receipt Date: 20111010
  Transmission Date: 20120403
  Serious: Yes (Other)
  Sender: FDA-Public Use
  Company Number: CA-ABBOTT-11P-028-0859260-00

PATIENT
  Sex: Female
  Weight: 72.64 kg

DRUGS (7)
  1. UNKNOWN MEDICATION [Concomitant]
     Indication: GLAUCOMA
  2. HUMIRA [Suspect]
     Indication: RHEUMATOID ARTHRITIS
     Route: 058
     Dates: start: 20090713, end: 20110715
  3. NAPROXEN [Concomitant]
     Indication: RHEUMATOID ARTHRITIS
     Route: 048
  4. FLONASE [Concomitant]
     Indication: LUNG DISORDER
     Dosage: EVERYDAY
     Route: 055
  5. PREVACID [Concomitant]
     Indication: GASTRIC DISORDER
     Route: 048
  6. SYMBICORT [Concomitant]
     Indication: ASTHMA
     Route: 055
  7. TIMOLOL MALEATE [Concomitant]
     Indication: GLAUCOMA
     Route: 047

REACTIONS (5)
  - ABASIA [None]
  - DRUG EFFECT DECREASED [None]
  - CYST RUPTURE [None]
  - OSTEOARTHRITIS [None]
  - ARTHRITIS [None]
